FAERS Safety Report 7203758-1 (Version None)
Quarter: 2010Q4

REPORT INFORMATION
  Report Type: 
  Country: None (occurrence: None)
  Receive Date: 20101230
  Receipt Date: 20101221
  Transmission Date: 20110411
  Serious: Yes (Hospitalization)
  Sender: FDA-Public Use
  Company Number: BR-ASTRAZENECA-2010SE60660

PATIENT
  Age: 73 Year
  Sex: Female
  Weight: 40 kg

DRUGS (3)
  1. SYMBICORT [Suspect]
     Indication: EMPHYSEMA
     Dosage: 160/4.5 MCG, TWO TIMES DAILY
     Route: 055
     Dates: start: 20060101, end: 20101201
  2. SYMBICORT [Suspect]
     Dosage: 320/9 MCG
     Route: 055
     Dates: start: 20101201
  3. UNKNOWN [Concomitant]
     Indication: LUNG DISORDER
     Dates: start: 20100701

REACTIONS (7)
  - APATHY [None]
  - CARDIAC FAILURE [None]
  - DECREASED APPETITE [None]
  - DYSPNOEA [None]
  - RENAL FAILURE [None]
  - THROMBOSIS [None]
  - WEIGHT DECREASED [None]
